FAERS Safety Report 6787543-0 (Version None)
Quarter: 2010Q2

REPORT INFORMATION
  Report Type: 
  Country: None (occurrence: None)
  Receive Date: 20100623
  Receipt Date: 20071219
  Transmission Date: 20101027
  Serious: No
  Sender: FDA-Public Use
  Company Number: US-PFIZER INC-2007013963

PATIENT
  Sex: Female
  Weight: 103.87 kg

DRUGS (4)
  1. DIFLUCAN [Suspect]
     Indication: INFECTION
     Dates: start: 20040801
  2. ZESTORETIC [Concomitant]
  3. TERBINAFINE HYDROCHLORIDE [Concomitant]
  4. CIPROFLOXACIN [Concomitant]

REACTIONS (2)
  - BREAST DISORDER FEMALE [None]
  - DRUG INEFFECTIVE [None]
